FAERS Safety Report 21394025 (Version 1)
Quarter: 2022Q3

REPORT INFORMATION
  Report Type: Spontaneous
  Country: FR (occurrence: FR)
  Receive Date: 20220930
  Receipt Date: 20220930
  Transmission Date: 20221026
  Serious: Yes (Hospitalization)
  Sender: FDA-Public Use
  Company Number: FR-AFSSAPS-MP20222989

PATIENT
  Age: 54 Year
  Sex: Male

DRUGS (2)
  1. ESOMEPRAZOLE [Suspect]
     Active Substance: ESOMEPRAZOLE
     Indication: Prophylaxis against gastrointestinal ulcer
     Dosage: 1 TAB/DAY FOR 4 DAYS
     Route: 048
     Dates: start: 20220822, end: 20220826
  2. PIROXICAM [Suspect]
     Active Substance: PIROXICAM
     Indication: Back pain
     Dosage: 1 TAB/DAY FOR 4 DAYS
     Route: 048
     Dates: start: 20220822, end: 20220826

REACTIONS (1)
  - Drug reaction with eosinophilia and systemic symptoms [Recovering/Resolving]

NARRATIVE: CASE EVENT DATE: 20220830
